FAERS Safety Report 8859443 (Version 2)
Quarter: 2013Q3

REPORT INFORMATION
  Report Type: Report from Study
  Country: US (occurrence: US)
  Receive Date: 20121024
  Receipt Date: 20130825
  Transmission Date: 20140515
  Serious: Yes (Hospitalization)
  Sender: FDA-Public Use
  Company Number: US-ROCHE-1146475

PATIENT
  Age: 62 Year
  Sex: Female
  Weight: 83.54 kg

DRUGS (19)
  1. PERTUZUMAB [Suspect]
     Indication: BREAST CANCER
     Dosage: LAST DOSE PRIOR TO SAE ON 17/SEP/2012
     Route: 042
     Dates: start: 20120803
  2. TRASTUZUMAB [Suspect]
     Indication: BREAST CANCER
     Dosage: LAST DOSE PRIOR TO SAE ON 17/SEP/2012
     Route: 042
     Dates: start: 20120803
  3. TRASTUZUMAB [Suspect]
     Route: 042
     Dates: start: 20121008
  4. DOCETAXEL [Suspect]
     Indication: BREAST CANCER
     Dosage: LAST DOSE PRIOR TO SAE ON 17/SEP/2012
     Route: 042
     Dates: start: 20120803
  5. DOCETAXEL [Suspect]
     Route: 042
     Dates: start: 20121008
  6. METFORMIN [Concomitant]
     Route: 065
     Dates: start: 2005
  7. LISINOPRIL [Concomitant]
     Route: 065
     Dates: start: 2005
  8. MULTI-VITAMIN SUPPLEMENT [Concomitant]
     Dosage: DAILY 1 TABLET
     Route: 065
     Dates: start: 20120724
  9. ZOFRAN [Concomitant]
     Route: 065
     Dates: start: 20120827
  10. IMODIUM [Concomitant]
     Dosage: 1-2 TABLETS
     Route: 065
     Dates: start: 20120827
  11. ADVIL [Concomitant]
     Dosage: AS REQUIRED
     Route: 065
  12. NEXIUM [Concomitant]
     Dosage: AS REQUIRED
     Route: 065
  13. PRILOSEC [Concomitant]
     Dosage: AS REQUIRED
     Route: 065
  14. FAMVIR [Concomitant]
  15. LOMOTIL [Concomitant]
  16. ATIVAN [Concomitant]
  17. METFORMIN [Concomitant]
  18. AMBIEN [Concomitant]
  19. PROTONIX [Concomitant]

REACTIONS (1)
  - Renal failure acute [Recovered/Resolved]
